FAERS Safety Report 6271280-5 (Version None)
Quarter: 2009Q3

REPORT INFORMATION
  Report Type: 
  Country: None (occurrence: None)
  Receive Date: 20090716
  Receipt Date: 20090716
  Transmission Date: 20100115
  Serious: Yes (Other)
  Sender: FDA-Public Use
  Company Number: None

PATIENT
  Sex: Female
  Weight: 58.9676 kg

DRUGS (2)
  1. REGLAN [Suspect]
     Indication: DYSPEPSIA
     Dosage: SEE #5
     Dates: end: 20090401
  2. REGLAN [Suspect]
     Indication: GASTROOESOPHAGEAL REFLUX DISEASE
     Dosage: SEE #5
     Dates: end: 20090401

REACTIONS (1)
  - TREMOR [None]
